FAERS Safety Report 15436566 (Version 1)
Quarter: 2018Q3

REPORT INFORMATION
  Report Type: Report from Study
  Country: US (occurrence: US)
  Receive Date: 20180927
  Receipt Date: 20180927
  Transmission Date: 20181010
  Serious: No
  Sender: FDA-Public Use
  Company Number: US-TAKEDA-2018TUS028062

PATIENT
  Sex: Male

DRUGS (1)
  1. PONATINIB [Suspect]
     Active Substance: PONATINIB
     Indication: CHRONIC MYELOID LEUKAEMIA
     Dosage: 15 MG, QD
     Route: 048
     Dates: start: 20140121

REACTIONS (8)
  - Influenza like illness [Unknown]
  - Laboratory test abnormal [Unknown]
  - Chest pain [Unknown]
  - Dizziness [Unknown]
  - Memory impairment [Unknown]
  - Arthralgia [Unknown]
  - Amnesia [Unknown]
  - Bone pain [Unknown]
